FAERS Safety Report 10433567 (Version 1)
Quarter: 2014Q3

REPORT INFORMATION
  Report Type: Spontaneous
  Country: US (occurrence: None)
  Receive Date: 20140815
  Receipt Date: 20140815
  Transmission Date: 20150326
  Serious: No
  Sender: FDA-Public Use
  Company Number: A-NJ2014-99111

PATIENT
  Age: 46 Year
  Sex: Female

DRUGS (6)
  1. XANAX [Concomitant]
     Active Substance: ALPRAZOLAM
  2. POTASSIUM [Concomitant]
     Active Substance: POTASSIUM
  3. FUROSEMIDE. [Concomitant]
     Active Substance: FUROSEMIDE
  4. VICODIN [Concomitant]
     Active Substance: ACETAMINOPHEN\HYDROCODONE BITARTRATE
  5. OPSUMIT [Suspect]
     Active Substance: MACITENTAN
     Indication: COR PULMONALE CHRONIC
     Route: 048
     Dates: start: 20140307
  6. SOMA [Concomitant]
     Active Substance: CARISOPRODOL

REACTIONS (1)
  - Dyspnoea [None]

NARRATIVE: CASE EVENT DATE: 20140308
